FAERS Safety Report 8522311-0 (Version None)
Quarter: 2012Q3

REPORT INFORMATION
  Report Type: 
  Country: None (occurrence: None)
  Receive Date: 20120709
  Receipt Date: 20110511
  Transmission Date: 20120928
  Serious: Yes (Disabling)
  Sender: FDA-Public Use
  Company Number: WAES 1105USA01992

PATIENT
  Age: 42 Year
  Sex: Female

DRUGS (8)
  1. DOXORUBICIN HYDROCHLORIDE [Concomitant]
  2. PHENERGAN (PROMETHAZINE HYDROCHL [Concomitant]
  3. DECADRON [Concomitant]
  4. ATIVAN [Concomitant]
  5. CYCLOPHOSPHAMIDE [Concomitant]
  6. FOSAPREPITANT DIMEGLUMINE [Suspect]
     Indication: PROPHYLAXIS
     Dosage: 125 MG/1X/IV
     Route: 042
     Dates: start: 20110101
  7. FOSAPREPITANT DIMEGLUMINE [Suspect]
     Indication: CHEMOTHERAPY
     Dosage: 125 MG/1X/IV
     Route: 042
     Dates: start: 20110101
  8. ALOXI [Concomitant]

REACTIONS (3)
  - NAUSEA [None]
  - IMPAIRED WORK ABILITY [None]
  - DRUG INEFFECTIVE [None]
